FAERS Safety Report 8024522-X (Version None)
Quarter: 2012Q1

REPORT INFORMATION
  Report Type: 
  Country: None (occurrence: None)
  Receive Date: 20120105
  Receipt Date: 20120102
  Transmission Date: 20120608
  Serious: Yes (Hospitalization, Other)
  Sender: FDA-Public Use
  Company Number: PHHY2012FR000677

PATIENT
  Sex: Male

DRUGS (4)
  1. SPRYCEL [Concomitant]
     Indication: CHRONIC MYELOID LEUKAEMIA
     Route: 065
     Dates: start: 20080101
  2. RAMIPRIL [Concomitant]
     Indication: HYPERTENSION
     Route: 048
  3. FENOFIBRATE [Concomitant]
     Indication: HYPERCHOLESTEROLAEMIA
     Route: 048
  4. GLEEVEC [Suspect]
     Indication: CHRONIC MYELOID LEUKAEMIA
     Route: 065
     Dates: start: 20050101, end: 20080101

REACTIONS (4)
  - NEOPLASM MALIGNANT [None]
  - GASTROINTESTINAL DISORDER [None]
  - COLON CANCER [None]
  - INFECTIOUS PERITONITIS [None]
